FAERS Safety Report 21546930 (Version 1)
Quarter: 2022Q4

REPORT INFORMATION
  Report Type: Spontaneous
  Country: US (occurrence: US)
  Receive Date: 20221103
  Receipt Date: 20221103
  Transmission Date: 20230113
  Serious: No
  Sender: FDA-Public Use
  Company Number: US-SA-SAC20221102002333

PATIENT
  Sex: Female

DRUGS (1)
  1. KEVZARA [Suspect]
     Active Substance: SARILUMAB
     Indication: Rheumatoid arthritis
     Dosage: 300MG, QOW
     Route: 058
     Dates: start: 202203

REACTIONS (3)
  - Disturbance in attention [Unknown]
  - Gait disturbance [Unknown]
  - Head injury [Unknown]

NARRATIVE: CASE EVENT DATE: 20220101
